FAERS Safety Report 5893216-9 (Version None)
Quarter: 2008Q3

REPORT INFORMATION
  Report Type: 
  Country: None (occurrence: None)
  Receive Date: 20080923
  Receipt Date: 20070809
  Transmission Date: 20090109
  Serious: No
  Sender: FDA-Public Use
  Company Number: US-ASTRAZENECA-2007UW19261

PATIENT
  Age: 30 Year
  Sex: Female
  Weight: 68 kg

DRUGS (9)
  1. SEROQUEL [Suspect]
     Indication: BIPOLAR II DISORDER
     Route: 048
     Dates: start: 20070201
  2. SEROQUEL [Suspect]
     Indication: POST-TRAUMATIC STRESS DISORDER
     Route: 048
     Dates: start: 20070201
  3. SEROQUEL [Suspect]
     Route: 048
     Dates: start: 20070201, end: 20070501
  4. SEROQUEL [Suspect]
     Route: 048
     Dates: start: 20070201, end: 20070501
  5. SEROQUEL [Suspect]
     Route: 048
     Dates: start: 20070601
  6. SEROQUEL [Suspect]
     Route: 048
     Dates: start: 20070601
  7. SEROQUEL [Suspect]
     Route: 048
     Dates: start: 20070601
  8. SEROQUEL [Suspect]
     Route: 048
     Dates: start: 20070601
  9. LABETALOL HCL [Concomitant]

REACTIONS (3)
  - DRUG INEFFECTIVE [None]
  - ELECTROCARDIOGRAM QT PROLONGED [None]
  - PREGNANCY [None]
